FAERS Safety Report 16503949 (Version 2)
Quarter: 2019Q3

REPORT INFORMATION
  Report Type: Spontaneous
  Country: JP (occurrence: JP)
  Receive Date: 20190701
  Receipt Date: 20190806
  Transmission Date: 20191004
  Serious: Yes (Death, Hospitalization, Other)
  Sender: FDA-Public Use
  Company Number: JP-ELI_LILLY_AND_COMPANY-JP201906012972

PATIENT
  Age: 77 Year
  Sex: Female
  Weight: 46.5 kg

DRUGS (8)
  1. DOCETAXEL. [Concomitant]
     Active Substance: DOCETAXEL
     Indication: LUNG ADENOCARCINOMA STAGE IV
     Dosage: 68 MG, CYCLICAL
     Route: 041
     Dates: start: 20190424, end: 20190604
  2. CYRAMZA [Suspect]
     Active Substance: RAMUCIRUMAB
     Indication: LUNG ADENOCARCINOMA STAGE IV
     Dosage: 460 MG, CYCLICAL
     Route: 041
     Dates: start: 20190424, end: 20190604
  3. EMEND [Concomitant]
     Active Substance: APREPITANT
     Indication: PROPHYLAXIS
     Dosage: 80 MG
     Route: 048
     Dates: start: 20190515, end: 20190606
  4. G LASTA [Concomitant]
     Active Substance: PEGFILGRASTIM
     Indication: PROPHYLAXIS
     Dosage: 3.6 MG, PRN
     Route: 058
     Dates: start: 20190430, end: 20190606
  5. POLARAMINE [Concomitant]
     Active Substance: DEXCHLORPHENIRAMINE MALEATE
     Indication: PROPHYLAXIS
     Dosage: 5 MG, CYCLICAL
     Route: 042
     Dates: start: 20190424, end: 20190604
  6. DEXART [Concomitant]
     Active Substance: DEXAMETHASONE SODIUM PHOSPHATE
     Indication: PROPHYLAXIS
     Dosage: 8 MG, CYCLICAL
     Route: 042
     Dates: start: 20190424, end: 20190604
  7. DECADRON [DEXAMETHASONE PHOSPHATE] [Concomitant]
     Indication: PROPHYLAXIS
     Dosage: 8 MG, PRN
     Route: 042
     Dates: start: 20190425, end: 20190604
  8. LOXOPROFEN SODIUM HYDRATE [Concomitant]
     Active Substance: LOXOPROFEN SODIUM DIHYDRATE
     Indication: TUMOUR PAIN
     Dosage: UNK
     Dates: start: 20181107, end: 20190614

REACTIONS (3)
  - Blood loss anaemia [Unknown]
  - Duodenal ulcer perforation [Fatal]
  - Vomiting [Recovered/Resolved]

NARRATIVE: CASE EVENT DATE: 20190430
